FAERS Safety Report 6217274-7 (Version None)
Quarter: 2009Q2

REPORT INFORMATION
  Report Type: 
  Country: None (occurrence: None)
  Receive Date: 20090608
  Receipt Date: 20090602
  Transmission Date: 20091009
  Serious: Yes (Hospitalization)
  Sender: FDA-Public Use
  Company Number: FR-BRISTOL-MYERS SQUIBB COMPANY-14648570

PATIENT
  Sex: Female

DRUGS (5)
  1. BICNU PWDR FOR INJ [Suspect]
     Indication: MANTLE CELL LYMPHOMA
     Dosage: DEPENDING ON CYCLE.
     Route: 042
     Dates: start: 20090328
  2. ETOPOSIDE [Suspect]
     Indication: MANTLE CELL LYMPHOMA
     Route: 042
     Dates: start: 20090328
  3. ARACYTINE [Suspect]
     Indication: MANTLE CELL LYMPHOMA
     Dosage: DEPENDING ON CYCLE
     Route: 042
     Dates: start: 20090328
  4. ALKERAN [Suspect]
     Indication: MANTLE CELL LYMPHOMA
     Route: 042
     Dates: start: 20090328
  5. RADIOTHERAPY [Suspect]
     Indication: MANTLE CELL LYMPHOMA

REACTIONS (2)
  - BONE MARROW FAILURE [None]
  - MOUTH ULCERATION [None]
